FAERS Safety Report 6972712-7 (Version None)
Quarter: 2010Q3

REPORT INFORMATION
  Report Type: 
  Country: None (occurrence: None)
  Receive Date: 20100909
  Receipt Date: 20100401
  Transmission Date: 20110219
  Serious: No
  Sender: FDA-Public Use
  Company Number: US-KINGPHARMUSA00001-K201000392

PATIENT
  Sex: Female

DRUGS (1)
  1. CYTOMEL [Suspect]
     Dosage: 5 MCG, UNK
     Dates: start: 20100101

REACTIONS (4)
  - GLUCOSE TOLERANCE IMPAIRED [None]
  - JOINT SWELLING [None]
  - MUSCLE SWELLING [None]
  - PAIN [None]
